FAERS Safety Report 8859091 (Version 2)
Quarter: 2012Q4

REPORT INFORMATION
  Report Type: Spontaneous
  Country: DE (occurrence: None)
  Receive Date: 20121023
  Receipt Date: 20121130
  Transmission Date: 20130627
  Serious: Yes (Hospitalization, Congenital Anomaly, Other)
  Sender: FDA-Public Use
  Company Number: AUR-APL-2012-04470

PATIENT
  Sex: Female
  Weight: 1.68 kg

DRUGS (6)
  1. METFORMIN [Suspect]
     Indication: TYPE 2 DIABETES MELLITUS
     Route: 064
     Dates: start: 20090709, end: 20100126
  2. RAMIPRIL (RAMIPRIL) [Suspect]
     Route: 064
     Dates: start: 20090709, end: 20100126
  3. METOPROLOL (METOPROLOL) [Concomitant]
  4. DOPEGYT (METHYLDOPA) [Concomitant]
  5. NOVORAPID (INSULIN ASPART) [Concomitant]
  6. PROTAPHANE (INSULIN HUMAN INJECTION, ISOPHANE) [Concomitant]

REACTIONS (7)
  - Heart disease congenital [None]
  - Transaminases increased [None]
  - Caesarean section [None]
  - HELLP syndrome [None]
  - Neonatal respiratory distress syndrome [None]
  - Aortic valve stenosis [None]
  - Transposition of the great vessels [None]
